FAERS Safety Report 7745991-6 (Version None)
Quarter: 2011Q3

REPORT INFORMATION
  Report Type: 
  Country: None (occurrence: None)
  Receive Date: 20110913
  Receipt Date: 20110824
  Transmission Date: 20111222
  Serious: No
  Sender: FDA-Public Use
  Company Number: US-ELI_LILLY_AND_COMPANY-US201108008508

PATIENT
  Sex: Female

DRUGS (12)
  1. MOMETASONE FUROATE [Concomitant]
     Dosage: 0.1 %, QD
     Dates: start: 20100807
  2. CYMBALTA [Suspect]
     Indication: DEPRESSION
     Dosage: 60 MG, QD
     Route: 048
     Dates: start: 20110607
  3. LIMBREL [Concomitant]
     Indication: BACK PAIN
     Dosage: 500 MG, BID
     Route: 048
     Dates: start: 20110607
  4. TOPROL-XL [Concomitant]
     Dosage: 50 MG, QD
     Route: 048
     Dates: start: 20100805
  5. CLEMASTINE FUMARATE [Concomitant]
     Dosage: 2.68 MG, BID
     Route: 048
     Dates: start: 20090803
  6. BECONASE AQ [Concomitant]
     Dosage: 42 UG, BID
     Route: 045
     Dates: start: 20020211
  7. SYNTHROID [Concomitant]
     Dosage: 50 UG, QD
     Route: 048
     Dates: start: 20110823
  8. LISINOPRIL [Concomitant]
     Dosage: 20 MG, QD
     Route: 048
     Dates: start: 20110607
  9. METOCLOPRAMIDE HYDROCHLORIDE [Concomitant]
     Dosage: 5 MG, UNK
     Dates: start: 20100903
  10. BUPROPION HYDROCHLORIDE [Concomitant]
     Dosage: 100 MG, QD
     Route: 048
     Dates: start: 20110801
  11. ASPIRIN [Concomitant]
     Dosage: 81 MG, QD
     Route: 048
     Dates: start: 20100805
  12. ESTRACE [Concomitant]
     Dosage: UNK, 3/W
     Dates: start: 20050921

REACTIONS (2)
  - ASPARTATE AMINOTRANSFERASE INCREASED [None]
  - ALANINE AMINOTRANSFERASE INCREASED [None]
